FAERS Safety Report 7311909-3 (Version None)
Quarter: 2011Q1

REPORT INFORMATION
  Report Type: 
  Country: None (occurrence: None)
  Receive Date: 20110224
  Receipt Date: 20110126
  Transmission Date: 20110831
  Serious: Yes (Hospitalization)
  Sender: FDA-Public Use
  Company Number: PHHO2008PH06783

PATIENT
  Sex: Male

DRUGS (15)
  1. CALTRATE PLUS [Concomitant]
  2. NORVASC [Concomitant]
  3. CELEBREX [Concomitant]
  4. ZOMETA [Suspect]
     Dosage: UNK
     Dates: start: 20060406, end: 20070415
  5. MORIAMIN [Concomitant]
  6. LOPID [Concomitant]
  7. VITAMIN AND MINERAL PRENATAL SUPPLEMENT W/ FOLIC ACID CAP [Concomitant]
  8. ANSIMAR [Concomitant]
  9. SUNITINIB MALATE [Concomitant]
     Dosage: UNK
     Dates: start: 20060318, end: 20070613
  10. FLUIMICIL [Concomitant]
  11. MYCOSTATIN [Concomitant]
  12. PIOGLITAZONE HYDROCHLORIDE [Concomitant]
  13. IBANDRONIC ACID [Concomitant]
  14. VALSARTAN [Concomitant]
  15. SOLOSA [Concomitant]

REACTIONS (5)
  - HYPOGLYCAEMIA [None]
  - DIZZINESS [None]
  - HYPOPHAGIA [None]
  - ASTHENIA [None]
  - MOUTH ULCERATION [None]
